FAERS Safety Report 8599857-2 (Version None)
Quarter: 2012Q3

REPORT INFORMATION
  Report Type: 
  Country: None (occurrence: None)
  Receive Date: 20120816
  Receipt Date: 20120221
  Transmission Date: 20120928
  Serious: No
  Sender: FDA-Public Use
  Company Number: US-AMGEN-USASP2011043141

PATIENT
  Age: 52 Year
  Sex: Female
  Weight: 86.1 kg

DRUGS (12)
  1. SIMVASTATIN [Concomitant]
     Dosage: UNK
  2. PANTOPRAZOLE [Concomitant]
     Dosage: UNK
  3. CARVEDILOL [Concomitant]
     Dosage: UNK
  4. AMLODIPINE [Concomitant]
     Dosage: UNK
  5. GLYBURIDE [Concomitant]
     Dosage: UNK
  6. NPLATE [Suspect]
     Indication: IDIOPATHIC THROMBOCYTOPENIC PURPURA
     Dosage: 1.5 MG, QWK
     Route: 058
     Dates: start: 20101208
  7. PREDNISONE TAB [Concomitant]
     Dosage: UNK
     Dates: start: 20101015, end: 20110216
  8. CORTICOSTEROIDS [Concomitant]
     Dosage: UNK
  9. ESTROGEN [Concomitant]
     Dosage: UNK
  10. CLONIDINE [Concomitant]
     Dosage: UNK
  11. OXYBUTYNIN CHLORIDE [Concomitant]
     Dosage: UNK
  12. LISINOPRIL [Concomitant]
     Dosage: UNK

REACTIONS (1)
  - LEUKOCYTOSIS [None]
